FAERS Safety Report 9684926 (Version 2)
Quarter: 2013Q4

REPORT INFORMATION
  Report Type: Spontaneous
  Country: BR (occurrence: BR)
  Receive Date: 20131113
  Receipt Date: 20131113
  Transmission Date: 20140711
  Serious: Yes (Hospitalization)
  Sender: FDA-Public Use
  Company Number: BR-BIOGENIDEC-2013BI028531

PATIENT
  Sex: Female

DRUGS (2)
  1. TYSABRI [Suspect]
     Indication: MULTIPLE SCLEROSIS
     Route: 042
     Dates: start: 20121101, end: 201308
  2. PHENOBARBITAL [Concomitant]
     Indication: CONVULSION
     Route: 048
     Dates: start: 1983

REACTIONS (6)
  - Hypersensitivity [Unknown]
  - Asthmatic crisis [Unknown]
  - Allergic respiratory symptom [Recovered/Resolved]
  - Major depression [Recovered/Resolved]
  - Bronchospasm [Unknown]
  - Hypertension [Unknown]
